FAERS Safety Report 8424227-7 (Version None)
Quarter: 2012Q2

REPORT INFORMATION
  Report Type: 
  Country: None (occurrence: None)
  Receive Date: 20120608
  Receipt Date: 20120316
  Transmission Date: 20120825
  Serious: No
  Sender: FDA-Public Use
  Company Number: US-ASTRAZENECA-2012SE05970

PATIENT
  Age: 63 Year
  Sex: Female
  Weight: 53.5 kg

DRUGS (6)
  1. PULMICORT FLEXHALER [Suspect]
     Dosage: ONE PUFF IN MORNING AND ONE PUFF IN EVENING
     Route: 055
  2. PREDNISONE [Concomitant]
  3. PULMICORT FLEXHALER [Suspect]
     Indication: ASTHMA
     Dosage: TWO PUFFS IN MORNING
     Route: 055
     Dates: start: 20120111, end: 20120117
  4. VENTOLIN [Concomitant]
  5. PULMICORT FLEXHALER [Suspect]
     Route: 055
     Dates: start: 20120126
  6. LEVAQUIN [Concomitant]

REACTIONS (3)
  - PNEUMONIA [None]
  - DIZZINESS [None]
  - SPEECH DISORDER [None]
